FAERS Safety Report 17881124 (Version 2)
Quarter: 2020Q2

REPORT INFORMATION
  Report Type: Spontaneous
  Country: US (occurrence: US)
  Receive Date: 20200610
  Receipt Date: 20200617
  Transmission Date: 20200714
  Serious: No
  Sender: FDA-Public Use
  Company Number: US-B.I. PHARMACEUTICALS,INC./RIDGEFIELD-2020-US-028862

PATIENT
  Sex: Female

DRUGS (1)
  1. MIRAPEX [Suspect]
     Active Substance: PRAMIPEXOLE DIHYDROCHLORIDE
     Indication: PRODUCT USED FOR UNKNOWN INDICATION
     Route: 065

REACTIONS (8)
  - Anger [Unknown]
  - Abnormal behaviour [Unknown]
  - Delusion [Unknown]
  - Depressed mood [Unknown]
  - Aggression [Unknown]
  - Confusional state [Unknown]
  - Amnesia [Unknown]
  - Feeling abnormal [Unknown]
